FAERS Safety Report 6567552-7 (Version None)
Quarter: 2010Q1

REPORT INFORMATION
  Report Type: 
  Country: None (occurrence: None)
  Receive Date: 20100202
  Receipt Date: 20100120
  Transmission Date: 20100710
  Serious: Yes (Other)
  Sender: FDA-Public Use
  Company Number: FR-ELI_LILLY_AND_COMPANY-FR200911007134

PATIENT
  Age: 79 Year
  Sex: Male
  Weight: 100 kg

DRUGS (6)
  1. CYMBALTA [Suspect]
     Indication: DEPRESSION
     Dosage: 60 MG, DAILY (1/D)
     Route: 048
     Dates: start: 20090203, end: 20090701
  2. KARDEGIC [Concomitant]
  3. ATENOLOL [Concomitant]
  4. METFORMIN HCL [Concomitant]
  5. DIAMICRON [Concomitant]
  6. EZETROL [Concomitant]

REACTIONS (1)
  - INTENTIONAL SELF-INJURY [None]
